FAERS Safety Report 10235065 (Version 1)
Quarter: 2014Q2

REPORT INFORMATION
  Report Type: Spontaneous
  Country: US (occurrence: None)
  Receive Date: 20140611
  Receipt Date: 20140611
  Transmission Date: 20141212
  Serious: Yes (Other)
  Sender: FDA-Public Use
  Company Number: AEGR000426

PATIENT
  Age: 63 Year
  Sex: Female
  Weight: 85.7 kg

DRUGS (3)
  1. JUXTAPID (LOMITAPIDE) CAPSULE, 5 MG [Suspect]
     Indication: TYPE IIA HYPERLIPIDAEMIA
     Route: 048
     Dates: start: 201301, end: 201402
  2. CRESTOR (ROSUVASTATIN CALCIUM) [Concomitant]
  3. ZETIA (EZETIMIBE) [Concomitant]

REACTIONS (5)
  - Gastrointestinal carcinoma [None]
  - Muscle spasms [None]
  - Discomfort [None]
  - Gastroenteritis viral [None]
  - Abdominal pain upper [None]
